FAERS Safety Report 20314300 (Version 1)
Quarter: 2022Q1

REPORT INFORMATION
  Report Type: Spontaneous
  Country: US (occurrence: US)
  Receive Date: 20220109
  Receipt Date: 20220109
  Transmission Date: 20220424
  Serious: No
  Sender: FDA-Public Use
  Company Number: US-SANOFI-00917997

PATIENT
  Age: 51 Year
  Sex: Female

DRUGS (1)
  1. AUBAGIO [Suspect]
     Active Substance: TERIFLUNOMIDE
     Indication: Multiple sclerosis
     Dosage: QD
     Dates: start: 20191207

REACTIONS (5)
  - Stress [Unknown]
  - Memory impairment [Unknown]
  - Cerebral disorder [Unknown]
  - Daydreaming [Unknown]
  - Visual impairment [Unknown]
